FAERS Safety Report 12861209 (Version 2)
Quarter: 2016Q4

REPORT INFORMATION
  Report Type: Report from Study
  Country: US (occurrence: US)
  Receive Date: 20161019
  Receipt Date: 20161028
  Transmission Date: 20170207
  Serious: Yes (Death, Hospitalization, Other)
  Sender: FDA-Public Use
  Company Number: US-BRISTOL-MYERS SQUIBB COMPANY-BMS-2016-083683

PATIENT
  Age: 56 Year
  Sex: Female
  Weight: 59.3 kg

DRUGS (3)
  1. CYTARABINE. [Suspect]
     Active Substance: CYTARABINE
     Indication: ACUTE MYELOID LEUKAEMIA
     Dosage: 1.5 G/M2, UNK
     Route: 042
     Dates: start: 20160902
  2. PRAVASTATIN SODIUM. [Suspect]
     Active Substance: PRAVASTATIN SODIUM
     Indication: ACUTE MYELOID LEUKAEMIA
     Dosage: 1280 MG, QD
     Route: 048
     Dates: start: 20160830
  3. IDARUBICIN [Suspect]
     Active Substance: IDARUBICIN
     Indication: ACUTE MYELOID LEUKAEMIA
     Dosage: 12 MG/M2, UNK
     Route: 042
     Dates: start: 20160902

REACTIONS (4)
  - Sepsis [Unknown]
  - Respiratory failure [Unknown]
  - Hypotension [Not Recovered/Not Resolved]
  - Atrial fibrillation [Fatal]

NARRATIVE: CASE EVENT DATE: 20160930
